FAERS Safety Report 8135918-X (Version None)
Quarter: 2012Q1

REPORT INFORMATION
  Report Type: 
  Country: None (occurrence: None)
  Receive Date: 20120210
  Receipt Date: 20120127
  Transmission Date: 20120608
  Serious: No
  Sender: FDA-Public Use
  Company Number: 2012SP005272

PATIENT
  Age: 41 Year
  Sex: Female

DRUGS (2)
  1. KLONOPIN [Concomitant]
  2. SAPHRIS [Suspect]
     Indication: SCHIZOPHRENIA
     Dosage: 10 MG, QD, SL
     Route: 060
     Dates: start: 20120126

REACTIONS (3)
  - OESOPHAGEAL PAIN [None]
  - HYPOAESTHESIA [None]
  - DYSPNOEA [None]
